FAERS Safety Report 24334302 (Version 1)
Quarter: 2024Q3

REPORT INFORMATION
  Report Type: Report from Study
  Country: CA (occurrence: CA)
  Receive Date: 20240918
  Receipt Date: 20240918
  Transmission Date: 20241016
  Serious: Yes (Other)
  Sender: ABBVIE
  Company Number: CA-ABBVIE-5927284

PATIENT
  Sex: Female

DRUGS (1)
  1. BOTOX [Suspect]
     Active Substance: ONABOTULINUMTOXINA
     Indication: Migraine
     Dosage: TIME INTERVAL: AS NECESSARY: EVERY 12 WEEKS
     Route: 030
     Dates: start: 20230621, end: 20230621

REACTIONS (3)
  - Lymphoma [Unknown]
  - Live birth [Unknown]
  - Maternal exposure during pregnancy [Unknown]
